FAERS Safety Report 24163163 (Version 1)
Quarter: 2024Q3

REPORT INFORMATION
  Report Type: Spontaneous
  Country: RO (occurrence: RO)
  Receive Date: 20240801
  Receipt Date: 20240801
  Transmission Date: 20241016
  Serious: Yes (Hospitalization)
  Sender: ROCHE
  Company Number: RO-ROCHE-10000035033

PATIENT
  Sex: Male

DRUGS (1)
  1. HEMLIBRA [Suspect]
     Active Substance: EMICIZUMAB-KXWH
     Indication: Haemophilia A with anti factor VIII
     Dosage: 150 MG/WEEK (3 MG/KG BODY/WEEK)
     Route: 065

REACTIONS (1)
  - Atrial fibrillation [Unknown]
